FAERS Safety Report 9520170 (Version 2)
Quarter: 2014Q1

REPORT INFORMATION
  Report Type: Spontaneous
  Country: BR (occurrence: BR)
  Receive Date: 20130912
  Receipt Date: 20140130
  Transmission Date: 20141002
  Serious: Yes (Death, Hospitalization)
  Sender: FDA-Public Use
  Company Number: BR-GLAXOSMITHKLINE-A1041234A

PATIENT
  Age: 80 Year
  Sex: Female

DRUGS (2)
  1. VOTRIENT [Suspect]
     Indication: PRODUCT USED FOR UNKNOWN INDICATION
     Route: 048
  2. RADIOTHERAPY [Suspect]
     Indication: PRODUCT USED FOR UNKNOWN INDICATION
     Route: 065

REACTIONS (23)
  - Motor dysfunction [Unknown]
  - Myalgia [Unknown]
  - Laboratory test abnormal [Unknown]
  - Cardio-respiratory arrest [Fatal]
  - Dyspnoea [Unknown]
  - Tachycardia [Unknown]
  - Respiratory failure [Unknown]
  - Anuria [Unknown]
  - Oxygen saturation decreased [Unknown]
  - Purulent discharge [Unknown]
  - Oliguria [Unknown]
  - Adenocarcinoma [Unknown]
  - Metastases to thyroid [Unknown]
  - Cervix neoplasm [Unknown]
  - Metastases to lung [Unknown]
  - Metastases to bone [Unknown]
  - Metastases to adrenals [Unknown]
  - Metastases to lymph nodes [Unknown]
  - Atrial fibrillation [Unknown]
  - Blood urea increased [Unknown]
  - Urine output decreased [Unknown]
  - Pulmonary sepsis [Unknown]
  - Lung infiltration [Unknown]
